FAERS Safety Report 9330734 (Version 1)
Quarter: 2013Q2

REPORT INFORMATION
  Report Type: Spontaneous
  Country: US (occurrence: None)
  Receive Date: 20130604
  Receipt Date: 20130604
  Transmission Date: 20140414
  Serious: Yes (Disabling, Other)
  Sender: FDA-Public Use
  Company Number: None

PATIENT
  Age: 40 Year
  Sex: Male
  Weight: 66.68 kg

DRUGS (2)
  1. ESCITALOPRAM [Suspect]
     Indication: MAJOR DEPRESSION
     Route: 048
     Dates: start: 20120301, end: 20120508
  2. ESCITALOPRAM [Suspect]
     Indication: ALCOHOLISM
     Route: 048
     Dates: start: 20120301, end: 20120508

REACTIONS (2)
  - Panic disorder [None]
  - Product substitution issue [None]
